FAERS Safety Report 15074948 (Version 4)
Quarter: 2023Q4

REPORT INFORMATION
  Report Type: Spontaneous
  Country: US (occurrence: US)
  Receive Date: 20180627
  Receipt Date: 20231128
  Transmission Date: 20240110
  Serious: Yes (Other)
  Sender: FDA-Public Use
  Company Number: US-SAOL THERAPEUTICS-2017SAO01802

PATIENT
  Age: 8 Year
  Sex: Female

DRUGS (2)
  1. LIORESAL [Suspect]
     Active Substance: BACLOFEN
     Indication: Muscle spasticity
     Dosage: 220.7 ?G, \DAY
     Route: 037
  2. LIORESAL [Suspect]
     Active Substance: BACLOFEN
     Indication: Cerebral palsy
     Dosage: 244.7 ?G, \DAY
     Route: 037

REACTIONS (7)
  - Overdose [Unknown]
  - Medication error [Unknown]
  - Unresponsive to stimuli [Unknown]
  - Loss of consciousness [Unknown]
  - Dyspnoea [Unknown]
  - Device infusion issue [Unknown]
  - Device physical property issue [Unknown]

NARRATIVE: CASE EVENT DATE: 20170830
